FAERS Safety Report 9435485 (Version 1)
Quarter: 2013Q3

REPORT INFORMATION
  Report Type: Spontaneous
  Country: BR (occurrence: BR)
  Receive Date: 20130801
  Receipt Date: 20130801
  Transmission Date: 20140515
  Serious: Yes (Death, Other)
  Sender: FDA-Public Use
  Company Number: BR-BAYER-2013-092197

PATIENT
  Age: 91 Year
  Sex: Female

DRUGS (1)
  1. ADALAT RETARD [Suspect]
     Indication: ANGINA PECTORIS
     Dosage: 20 MG, QD
     Route: 060
     Dates: start: 1979, end: 2003

REACTIONS (6)
  - Infarction [Not Recovered/Not Resolved]
  - Cerebrovascular accident [Fatal]
  - Hypertension [Not Recovered/Not Resolved]
  - Incorrect route of drug administration [None]
  - Malaise [Not Recovered/Not Resolved]
  - Fall [Not Recovered/Not Resolved]
